FAERS Safety Report 8853253 (Version 1)
Quarter: 2012Q4

REPORT INFORMATION
  Report Type: 
  Country: MX (occurrence: MX)
  Receive Date: 20121022
  Receipt Date: 20121022
  Transmission Date: 20130627
  Serious: Yes (Death)
  Sender: FDA-Public Use
  Company Number: MX-PFIZER INC-2012257954

PATIENT

DRUGS (1)
  1. ZYVOXAM [Suspect]

REACTIONS (1)
  - Death [Fatal]
